FAERS Safety Report 8212379-3 (Version None)
Quarter: 2012Q1

REPORT INFORMATION
  Report Type: 
  Country: None (occurrence: None)
  Receive Date: 20120228
  Receipt Date: 20110913
  Transmission Date: 20120608
  Serious: Yes (Hospitalization)
  Sender: FDA-Public Use
  Company Number: US201107001902

PATIENT
  Age: 60 Year
  Sex: Female
  Weight: 112.9 kg

DRUGS (10)
  1. NEURONTIN [Concomitant]
  2. OLANZAPINE [Suspect]
     Indication: SCHIZOPHRENIA
     Dosage: 405 MG, INTRAMUSCULAR
     Route: 030
     Dates: start: 20110414
  3. OLANZAPINE [Suspect]
     Indication: SCHIZOPHRENIA
     Dosage: 405 MG, INTRAMUSCULAR
     Route: 030
     Dates: start: 20110705
  4. OLANZAPINE [Suspect]
     Indication: SCHIZOPHRENIA
     Dosage: 405 MG, INTRAMUSCULAR
     Route: 030
     Dates: start: 20110217
  5. OLANZAPINE [Suspect]
     Indication: SCHIZOPHRENIA
     Dosage: 405 MG, INTRAMUSCULAR
     Route: 030
     Dates: start: 20110317
  6. OLANZAPINE [Suspect]
     Indication: SCHIZOPHRENIA
     Dosage: 405 MG, INTRAMUSCULAR
     Route: 030
     Dates: start: 20110609
  7. OLANZAPINE [Suspect]
     Indication: SCHIZOPHRENIA
     Dosage: 405 MG, INTRAMUSCULAR
     Route: 030
     Dates: start: 20110512
  8. AVELOX [Concomitant]
  9. LOVAZA [Concomitant]
  10. LIPITOR [Concomitant]

REACTIONS (7)
  - DEPRESSED LEVEL OF CONSCIOUSNESS [None]
  - DELIRIUM [None]
  - DISORIENTATION [None]
  - DIZZINESS [None]
  - LOSS OF CONSCIOUSNESS [None]
  - SEDATION [None]
  - CONFUSIONAL STATE [None]
